FAERS Safety Report 5209359-9 (Version None)
Quarter: 2007Q1

REPORT INFORMATION
  Report Type: 
  Country: None (occurrence: None)
  Receive Date: 20070116
  Receipt Date: 20070110
  Transmission Date: 20070707
  Serious: Yes (Hospitalization, Other)
  Sender: FDA-Public Use
  Company Number: JP-SHR-JP-2006-036620

PATIENT
  Age: 27 Year
  Sex: Female

DRUGS (2)
  1. SOTALOL HYDROCHLORIDE [Suspect]
     Route: 048
  2. DIGITALIS PURPUREA [Concomitant]

REACTIONS (3)
  - BRADYCARDIA FOETAL [None]
  - INTRA-UTERINE DEATH [None]
  - UTERINE CONTRACTIONS DURING PREGNANCY [None]
